FAERS Safety Report 7637844-9 (Version None)
Quarter: 2011Q3

REPORT INFORMATION
  Report Type: 
  Country: None (occurrence: None)
  Receive Date: 20110713
  Receipt Date: 20110630
  Transmission Date: 20111222
  Serious: Yes (Other)
  Sender: FDA-Public Use
  Company Number: 2011029090

PATIENT
  Sex: Female
  Weight: 53 kg

DRUGS (8)
  1. XOPENEX [Concomitant]
  2. ALPRAZOLAM [Concomitant]
  3. PRAMIPEXOLE (PRAMIPEXOLE) [Concomitant]
  4. PRO AIR (PROCATEROL HYDROCHLORIDE) [Concomitant]
  5. EVISTA [Concomitant]
  6. HIZENTRA [Suspect]
     Indication: IMMUNODEFICIENCY COMMON VARIABLE
     Dosage: (15 G 1X/WEEK SUBCUTANEOUS)
     Route: 058
     Dates: start: 20110215
  7. HIZENTRA [Suspect]
     Indication: SELECTIVE IGG SUBCLASS DEFICIENCY
     Dosage: (15 G 1X/WEEK SUBCUTANEOUS)
     Route: 058
     Dates: start: 20110215
  8. TOPAMAX [Concomitant]

REACTIONS (7)
  - INFUSION SITE OEDEMA [None]
  - LEUKOPENIA [None]
  - WHITE BLOOD CELL COUNT DECREASED [None]
  - BLOOD DISORDER [None]
  - NASAL MUCOSAL DISORDER [None]
  - NEUTROPENIA [None]
  - PHARYNGEAL ERYTHEMA [None]
